FAERS Safety Report 5425667-0 (Version None)
Quarter: 2007Q3

REPORT INFORMATION
  Report Type: 
  Country: None (occurrence: None)
  Receive Date: 20070824
  Receipt Date: 20070814
  Transmission Date: 20080115
  Serious: Yes (Other)
  Sender: FDA-Public Use
  Company Number: US-PFIZER INC-2007068548

PATIENT
  Sex: Male

DRUGS (1)
  1. GEODON [Suspect]
     Dosage: DAILY DOSE:120MG

REACTIONS (3)
  - DRUG DEPENDENCE [None]
  - IRRITABILITY [None]
  - PARAESTHESIA [None]
